FAERS Safety Report 14816813 (Version 1)
Quarter: 2018Q2

REPORT INFORMATION
  Report Type: Spontaneous
  Country: DE (occurrence: DE)
  Receive Date: 20180426
  Receipt Date: 20180426
  Transmission Date: 20180711
  Serious: Yes (Other)
  Sender: FDA-Public Use
  Company Number: DE-TEVA-2018-DE-886579

PATIENT
  Age: 48 Year
  Sex: Female
  Weight: 71 kg

DRUGS (2)
  1. IBUPROFEN 800 [Suspect]
     Active Substance: IBUPROFEN
     Indication: MUSCLE TIGHTNESS
     Route: 048
     Dates: start: 20180111
  2. TIZANIDINE 2 MG [Suspect]
     Active Substance: TIZANIDINE
     Dosage: 2 MILLIGRAM DAILY;
     Route: 048
     Dates: start: 20180120

REACTIONS (2)
  - Angioedema [Not Recovered/Not Resolved]
  - Tenderness [Not Recovered/Not Resolved]

NARRATIVE: CASE EVENT DATE: 20180117
